FAERS Safety Report 19188064 (Version 1)
Quarter: 2021Q2

REPORT INFORMATION
  Report Type: Spontaneous
  Country: US (occurrence: US)
  Receive Date: 20210427
  Receipt Date: 20210427
  Transmission Date: 20210717
  Serious: No
  Sender: FDA-Public Use
  Company Number: US-ACELRX PHARMACEUTICALS, INC-ACEL20210637

PATIENT

DRUGS (1)
  1. DSUVIA [Suspect]
     Active Substance: SUFENTANIL
     Indication: PRODUCT USED FOR UNKNOWN INDICATION
     Dosage: UNKNOWN
     Route: 060

REACTIONS (2)
  - Delayed recovery from anaesthesia [Unknown]
  - Somnolence [Unknown]
